FAERS Safety Report 4650092-X (Version None)
Quarter: 2005Q2

REPORT INFORMATION
  Report Type: 
  Country: None (occurrence: None)
  Receive Date: 20050428
  Receipt Date: 20050419
  Transmission Date: 20051028
  Serious: Yes (Life-Threatening)
  Sender: FDA-Public Use
  Company Number: 2005-BP-06441NB

PATIENT
  Sex: Female

DRUGS (2)
  1. MOBIC [Suspect]
     Dosage: 10 MG, PO
     Route: 048
  2. MUCOSTA (REBAMIPIDE) [Suspect]
     Dosage: PO
     Route: 048

REACTIONS (1)
  - STEVENS-JOHNSON SYNDROME [None]
